FAERS Safety Report 5300059-3 (Version None)
Quarter: 2007Q2

REPORT INFORMATION
  Report Type: 
  Country: None (occurrence: None)
  Receive Date: 20070410
  Receipt Date: 20070327
  Transmission Date: 20071010
  Serious: Yes (Hospitalization)
  Sender: FDA-Public Use
  Company Number: B0456432A

PATIENT
  Age: 65 Year
  Sex: Female

DRUGS (4)
  1. PAXIL [Suspect]
     Indication: DEPRESSION
     Dosage: PER DAY ORAL
     Route: 048
     Dates: start: 20060531, end: 20060625
  2. ESTAZOLAM [Concomitant]
  3. NITRAZEPAM [Concomitant]
  4. DIHYDROERGOCRISTINE MESYL [Concomitant]

REACTIONS (17)
  - BLOOD CHOLESTEROL INCREASED [None]
  - BLOOD TEST ABNORMAL [None]
  - COGNITIVE DISORDER [None]
  - COMMUNICATION DISORDER [None]
  - CONFUSIONAL STATE [None]
  - DEPRESSED LEVEL OF CONSCIOUSNESS [None]
  - DISORIENTATION [None]
  - DIZZINESS [None]
  - ENERGY INCREASED [None]
  - INCOHERENT [None]
  - INSOMNIA [None]
  - LOGORRHOEA [None]
  - MANIA [None]
  - PERSECUTORY DELUSION [None]
  - SCHIZOAFFECTIVE DISORDER [None]
  - SPEECH DISORDER [None]
  - TREMOR [None]
